FAERS Safety Report 6988570-0 (Version None)
Quarter: 2010Q3

REPORT INFORMATION
  Report Type: 
  Country: None (occurrence: None)
  Receive Date: 20100827
  Receipt Date: 20100719
  Transmission Date: 20110219
  Serious: Yes (Hospitalization, Other)
  Sender: FDA-Public Use
  Company Number: 014163

PATIENT
  Sex: Female

DRUGS (6)
  1. LACOSAMIDE [Suspect]
     Indication: CONVULSION
     Dosage: 100 MG BID
     Dates: start: 20100401, end: 20100617
  2. ZONISAMIDE [Concomitant]
  3. RUFINAMIDE [Concomitant]
  4. LEVETIRACETAM [Concomitant]
  5. SERTRALINE HYDROCHLORIDE [Concomitant]
  6. LORAZEPAM [Concomitant]

REACTIONS (4)
  - DEPRESSION [None]
  - INTENTIONAL OVERDOSE [None]
  - SUICIDAL IDEATION [None]
  - SUICIDE ATTEMPT [None]
